FAERS Safety Report 20644268 (Version 2)
Quarter: 2022Q2

REPORT INFORMATION
  Report Type: Spontaneous
  Country: GB (occurrence: GB)
  Receive Date: 20220328
  Receipt Date: 20220524
  Transmission Date: 20220721
  Serious: Yes (Other)
  Sender: FDA-Public Use
  Company Number: GB-PFIZER INC-202200424817

PATIENT
  Age: 61 Year
  Sex: Female

DRUGS (2)
  1. PALBOCICLIB [Suspect]
     Active Substance: PALBOCICLIB
     Indication: Breast cancer metastatic
     Dosage: 125 MG, CYCLIC (125 MG, 1X/DAY, 3 WEEKS ON, ONE WEEK OFF)
     Dates: start: 201806
  2. LETROZOLE [Suspect]
     Active Substance: LETROZOLE
     Indication: Breast cancer metastatic
     Dosage: 2.5 MG, 1X/DAY, CONTINUOUSLY

REACTIONS (4)
  - Haemoglobin decreased [Unknown]
  - Iron deficiency anaemia [Unknown]
  - Wound haemorrhage [Unknown]
  - Infection [Unknown]
